FAERS Safety Report 15627357 (Version 1)
Quarter: 2018Q4

REPORT INFORMATION
  Report Type: Spontaneous
  Country: NL (occurrence: NL)
  Receive Date: 20181116
  Receipt Date: 20181116
  Transmission Date: 20190205
  Serious: Yes (Hospitalization)
  Sender: FDA-Public Use
  Company Number: PHHY2018NL156200

PATIENT
  Age: 40 Year
  Sex: Male
  Weight: 80 kg

DRUGS (2)
  1. CLOBAZAM. [Concomitant]
     Active Substance: CLOBAZAM
     Indication: PRODUCT USED FOR UNKNOWN INDICATION
     Dosage: 10 MG, Q12H (10MG 2DD)
     Route: 065
  2. LAMOTRIGINE. [Suspect]
     Active Substance: LAMOTRIGINE
     Indication: EPILEPSY
     Dosage: 1 DF, QD
     Route: 065
     Dates: start: 20181005, end: 20181014

REACTIONS (4)
  - Purpura [Recovering/Resolving]
  - Rash [Recovering/Resolving]
  - Malaise [Recovering/Resolving]
  - Pyrexia [Recovering/Resolving]

NARRATIVE: CASE EVENT DATE: 20181010
